FAERS Safety Report 6968660-9 (Version None)
Quarter: 2010Q3

REPORT INFORMATION
  Report Type: 
  Country: None (occurrence: None)
  Receive Date: 20100907
  Receipt Date: 20100827
  Transmission Date: 20110219
  Serious: Yes (Death)
  Sender: FDA-Public Use
  Company Number: FR-SANOFI-AVENTIS-2010SA051069

PATIENT
  Age: 27 Year
  Sex: Male

DRUGS (6)
  1. TERCIAN [Suspect]
     Indication: PRODUCT USED FOR UNKNOWN INDICATION
     Route: 048
     Dates: start: 20100101
  2. STILNOX [Suspect]
     Indication: INSOMNIA
     Route: 048
     Dates: start: 20100301
  3. REMICADE [Suspect]
     Indication: PSORIASIS
     Route: 042
     Dates: start: 20100222, end: 20100601
  4. SEROPLEX [Suspect]
     Indication: PRODUCT USED FOR UNKNOWN INDICATION
     Route: 048
     Dates: start: 20100301
  5. DICLOFENAC SODIUM [Concomitant]
     Indication: PRODUCT USED FOR UNKNOWN INDICATION
     Route: 065
     Dates: start: 20100601
  6. VENTOLIN [Concomitant]
     Indication: ASTHMA
     Route: 065

REACTIONS (3)
  - COMPLETED SUICIDE [None]
  - DEPRESSION [None]
  - MULTIPLE DRUG OVERDOSE INTENTIONAL [None]
